FAERS Safety Report 6876724-3 (Version None)
Quarter: 2010Q2

REPORT INFORMATION
  Report Type: 
  Country: None (occurrence: None)
  Receive Date: 20100616
  Receipt Date: 20100426
  Transmission Date: 20101027
  Serious: No
  Sender: FDA-Public Use
  Company Number: DSA_43056_2010

PATIENT
  Sex: Female

DRUGS (4)
  1. XENAZINE [Suspect]
     Indication: TOURETTE'S DISORDER
     Dosage: 12.5 MG BID ORAL
     Route: 048
     Dates: start: 20100318, end: 20100401
  2. TENEX [Concomitant]
  3. REQUIP [Concomitant]
  4. ARICEPT [Concomitant]

REACTIONS (1)
  - TIC [None]
